FAERS Safety Report 20076289 (Version 1)
Quarter: 2021Q4

REPORT INFORMATION
  Report Type: Spontaneous
  Country: US (occurrence: US)
  Receive Date: 20211116
  Receipt Date: 20211116
  Transmission Date: 20220303
  Serious: No
  Sender: FDA-Public Use
  Company Number: US-TEVA-2021-US-1974367

PATIENT
  Age: 62 Year
  Sex: Male
  Weight: 78.93 kg

DRUGS (3)
  1. ALBUTEROL SULFATE [Suspect]
     Active Substance: ALBUTEROL SULFATE
     Indication: Chronic obstructive pulmonary disease
     Dosage: STARTED TWO YEARS AGO/2 PUFFS UP TO 5 TIMES A DAY AS NEEDED
     Route: 065
  2. TRELEGY ELLIPTA [Concomitant]
     Active Substance: FLUTICASONE FUROATE\UMECLIDINIUM BROMIDE\VILANTEROL TRIFENATATE
     Dosage: ONCE A DAY
  3. OXYGEN [Concomitant]
     Active Substance: OXYGEN
     Dosage: (USE 2.2 LITERS) 2 MONTHS AGO TO TAKE AS NEEDED

REACTIONS (2)
  - Device delivery system issue [Unknown]
  - Dyspnoea [Unknown]
